FAERS Safety Report 5156873-0 (Version None)
Quarter: 2006Q4

REPORT INFORMATION
  Report Type: 
  Country: None (occurrence: None)
  Receive Date: 20061115
  Receipt Date: 20061102
  Transmission Date: 20070319
  Serious: Yes (Hospitalization)
  Sender: FDA-Public Use
  Company Number: TOR 2006-0047

PATIENT
  Age: 53 Year
  Sex: Female

DRUGS (2)
  1. TOREMIFENE (TOREMIFENE) [Suspect]
     Indication: BREAST CANCER
     Dosage: 40 MG ORAL
     Route: 048
     Dates: start: 20030820, end: 20050721
  2. RADIOTHERAPY [Suspect]
     Dosage: TOTAL DOSE 60 GY
     Dates: start: 20030901, end: 20031015

REACTIONS (3)
  - CRYPTOGENIC ORGANISING PNEUMONIA [None]
  - DRUG INTERACTION [None]
  - INTERSTITIAL LUNG DISEASE [None]
